FAERS Safety Report 6522734-5 (Version None)
Quarter: 2009Q4

REPORT INFORMATION
  Report Type: 
  Country: None (occurrence: None)
  Receive Date: 20091222
  Receipt Date: 20091208
  Transmission Date: 20100525
  Serious: Yes (Hospitalization, Other)
  Sender: FDA-Public Use
  Company Number: 2009SP040553

PATIENT
  Age: 64 Year
  Sex: Male
  Weight: 67 kg

DRUGS (8)
  1. REMERON [Suspect]
     Indication: PROGRESSIVE MULTIFOCAL LEUKOENCEPHALOPATHY
     Dosage: 30 MG;QD;PO
     Route: 048
     Dates: start: 20091015
  2. KALETRA [Suspect]
     Indication: HIV INFECTION
     Dosage: 2 DF; BID; PO
     Route: 048
     Dates: start: 20090729
  3. TRUVADA [Suspect]
     Indication: HIV INFECTION
     Dosage: 1 DF;QD;PO
     Route: 048
     Dates: start: 20090729
  4. LARIAM [Suspect]
     Dosage: 250 MG;QD;PO; 250 MG;QW;PO
     Route: 048
     Dates: start: 20091015
  5. LARIAM [Suspect]
     Dosage: 250 MG;QD;PO; 250 MG;QW;PO
     Route: 048
     Dates: start: 20091018
  6. KEPPRA (CON.) [Concomitant]
  7. BENERVA (CON.) [Concomitant]
  8. BACTRIM /00086101/ (CON.) [Concomitant]

REACTIONS (18)
  - ABNORMAL BEHAVIOUR [None]
  - AGGRESSION [None]
  - APRAXIA [None]
  - ATTENTION DEFICIT/HYPERACTIVITY DISORDER [None]
  - CONFUSIONAL STATE [None]
  - ELECTROENCEPHALOGRAM ABNORMAL [None]
  - GRAND MAL CONVULSION [None]
  - HALLUCINATION [None]
  - HALLUCINATION, VISUAL [None]
  - IMMUNE RECONSTITUTION SYNDROME [None]
  - INCOHERENT [None]
  - JC VIRUS TEST POSITIVE [None]
  - NERVOUS SYSTEM DISORDER [None]
  - PERSECUTORY DELUSION [None]
  - PROGRESSIVE MULTIFOCAL LEUKOENCEPHALOPATHY [None]
  - PSYCHOMOTOR HYPERACTIVITY [None]
  - THINKING ABNORMAL [None]
  - VISUAL IMPAIRMENT [None]
